FAERS Safety Report 16415315 (Version 1)
Quarter: 2019Q2

REPORT INFORMATION
  Report Type: Spontaneous
  Country: SI (occurrence: SI)
  Receive Date: 20190611
  Receipt Date: 20190611
  Transmission Date: 20190711
  Serious: Yes (Other)
  Sender: FDA-Public Use
  Company Number: SI-TAIHO ONCOLOGY  INC-IM-2019-00286

PATIENT
  Age: 52 Year
  Sex: Male

DRUGS (1)
  1. LONSURF [Suspect]
     Active Substance: TIPIRACIL HYDROCHLORIDE\TRIFLURIDINE
     Indication: COLORECTAL CANCER METASTATIC
     Dosage: 70 MG (UNK MG/M2) BID, 5 DAYS + 5 DAYS
     Route: 048
     Dates: start: 201806

REACTIONS (3)
  - Vesical fistula [Unknown]
  - Fatigue [Unknown]
  - Anal abscess [Unknown]

NARRATIVE: CASE EVENT DATE: 2019
